FAERS Safety Report 8916437 (Version 1)
Quarter: 2012Q4

REPORT INFORMATION
  Report Type: 
  Country: US (occurrence: US)
  Receive Date: 20121120
  Receipt Date: 20121120
  Transmission Date: 20130627
  Serious: Yes (Death, Hospitalization)
  Sender: FDA-Public Use
  Company Number: US-PFIZER INC-2012220334

PATIENT
  Age: 73 Year
  Sex: Female
  Weight: 91.2 kg

DRUGS (10)
  1. TOFACITINIB CITRATE [Suspect]
     Indication: RA
     Dosage: 10 mg, 2x/day
     Route: 048
     Dates: start: 20111216, end: 20120830
  2. LISINOPRIL [Concomitant]
     Indication: HYPERTENSION
     Dosage: UNK
     Route: 048
     Dates: start: 2005
  3. ASPIRIN [Concomitant]
     Indication: PROPHYLAXIS
     Dosage: UNK
     Dates: start: 2006
  4. FOLIC ACID [Concomitant]
     Indication: NUTRITIONAL SUPPLEMENT
     Dosage: UNK
     Dates: start: 1994
  5. GLIPIZIDE [Concomitant]
     Indication: DIABETES
     Dosage: UNK
     Dates: start: 2006
  6. ZOCOR [Concomitant]
     Indication: HIGH CHOLESTEROL
     Dosage: UNK
     Dates: start: 2006
  7. NIACIN [Concomitant]
     Indication: HIGH CHOLESTEROL
     Dosage: UNK
  8. ZETIA [Concomitant]
     Indication: HIGH CHOLESTEROL
     Dosage: UNK
  9. ZOLOFT [Concomitant]
     Indication: DEPRESSION
     Dosage: UNK
     Dates: start: 2006
  10. METHOTREXATE [Concomitant]
     Indication: RA
     Dosage: UNK
     Dates: start: 1994

REACTIONS (3)
  - Clostridium difficile colitis [Fatal]
  - Renal failure [None]
  - Septic shock [None]
